FAERS Safety Report 11530082 (Version 1)
Quarter: 2015Q3

REPORT INFORMATION
  Report Type: Spontaneous
  Country: US (occurrence: US)
  Receive Date: 20150921
  Receipt Date: 20150921
  Transmission Date: 20151125
  Serious: No
  Sender: FDA-Public Use
  Company Number: US-GLAXOSMITHKLINE-US2015133713

PATIENT
  Sex: Female

DRUGS (12)
  1. OXYCODONE [Concomitant]
     Active Substance: OXYCODONE
  2. VITAMIN D2 [Concomitant]
     Active Substance: ERGOCALCIFEROL
  3. VENTOLIN HFA [Suspect]
     Active Substance: ALBUTEROL SULFATE
     Indication: EMPHYSEMA
  4. XARELTO [Concomitant]
     Active Substance: RIVAROXABAN
  5. AMITRIPTYLINE [Concomitant]
     Active Substance: AMITRIPTYLINE
  6. ESCITALOPRAM [Concomitant]
     Active Substance: ESCITALOPRAM OXALATE
  7. MORPHINE [Concomitant]
     Active Substance: MORPHINE
  8. PROCHLORPERAZINE. [Concomitant]
     Active Substance: PROCHLORPERAZINE
  9. VENTOLIN HFA [Suspect]
     Active Substance: ALBUTEROL SULFATE
     Indication: CHRONIC OBSTRUCTIVE PULMONARY DISEASE
     Dosage: 2 PUFF(S), TID
     Route: 055
  10. ATORVASTATIN [Concomitant]
     Active Substance: ATORVASTATIN
  11. OMEPRAZOLE. [Concomitant]
     Active Substance: OMEPRAZOLE
  12. VENTOLIN HFA [Suspect]
     Active Substance: ALBUTEROL SULFATE
     Indication: LUNG NEOPLASM MALIGNANT

REACTIONS (3)
  - Overdose [Unknown]
  - Device use error [Unknown]
  - Dyspnoea [Not Recovered/Not Resolved]
